FAERS Safety Report 12335700 (Version 1)
Quarter: 2016Q2

REPORT INFORMATION
  Report Type: Spontaneous
  Country: CH (occurrence: CH)
  Receive Date: 20160505
  Receipt Date: 20160505
  Transmission Date: 20160815
  Serious: Yes (Other)
  Sender: FDA-Public Use
  Company Number: CH-ROCHE-1751816

PATIENT
  Sex: Female

DRUGS (6)
  1. CETIRIZINE HYDROCHLORIDE. [Concomitant]
     Active Substance: CETIRIZINE HYDROCHLORIDE
  2. SOVALDI [Suspect]
     Active Substance: SOFOSBUVIR
     Indication: CHRONIC HEPATITIS C
     Route: 065
     Dates: start: 20150612, end: 20151012
  3. COPEGUS [Suspect]
     Active Substance: RIBAVIRIN
     Indication: CHRONIC HEPATITIS C
     Route: 065
     Dates: start: 20150612, end: 20151012
  4. DAFALGAN [Concomitant]
     Active Substance: ACETAMINOPHEN
  5. ZURCAL [Concomitant]
     Active Substance: PANTOPRAZOLE SODIUM
  6. NOVALGIN (SWITZERLAND) [Concomitant]
     Active Substance: DIPYRONE

REACTIONS (2)
  - Drug ineffective [Unknown]
  - Hepatitis C [Unknown]
